FAERS Safety Report 13588525 (Version 2)
Quarter: 2017Q3

REPORT INFORMATION
  Report Type: Spontaneous
  Country: US (occurrence: US)
  Receive Date: 20170529
  Receipt Date: 20170801
  Transmission Date: 20171127
  Serious: Yes (Hospitalization, Other)
  Sender: FDA-Public Use
  Company Number: US-BAYER-2017-094072

PATIENT
  Age: 24 Year
  Sex: Female

DRUGS (1)
  1. SKYLA [Suspect]
     Active Substance: LEVONORGESTREL
     Indication: CONTRACEPTION
     Dosage: 14 MCG/24HR, CONT
     Route: 015
     Dates: start: 20170511, end: 20170516

REACTIONS (15)
  - Eye swelling [Not Recovered/Not Resolved]
  - Pyrexia [None]
  - Dysarthria [Not Recovered/Not Resolved]
  - Musculoskeletal stiffness [None]
  - Abdominal pain lower [Not Recovered/Not Resolved]
  - Dyspnoea [None]
  - Hypoaesthesia [Not Recovered/Not Resolved]
  - Facial paresis [Not Recovered/Not Resolved]
  - Hypokalaemia [None]
  - Urinary retention [Recovered/Resolved]
  - Paraesthesia [None]
  - Muscular weakness [Recovering/Resolving]
  - Facial paralysis [Not Recovered/Not Resolved]
  - Lacrimation increased [Not Recovered/Not Resolved]
  - Hemiparesis [None]

NARRATIVE: CASE EVENT DATE: 201705
